FAERS Safety Report 18571484 (Version 2)
Quarter: 2021Q1

REPORT INFORMATION
  Report Type: Report from Study
  Country: JP (occurrence: JP)
  Receive Date: 20201202
  Receipt Date: 20210201
  Transmission Date: 20210419
  Serious: Yes (Death)
  Sender: FDA-Public Use
  Company Number: JP-EMD SERONO-9202585

PATIENT
  Age: 80 Year
  Sex: Male
  Weight: 48 kg

DRUGS (6)
  1. BAVENCIO [Suspect]
     Active Substance: AVELUMAB
     Indication: NEUROENDOCRINE CARCINOMA OF THE SKIN
     Dates: start: 20190514
  2. ACETAMINOPHEN. [Concomitant]
     Active Substance: ACETAMINOPHEN
     Indication: PREMEDICATION
     Route: 048
     Dates: start: 20190514, end: 20200513
  3. BAVENCIO [Suspect]
     Active Substance: AVELUMAB
     Dates: start: 20190710
  4. BAVENCIO [Suspect]
     Active Substance: AVELUMAB
     Dates: start: 20190807
  5. ALESION [Concomitant]
     Active Substance: EPINASTINE HYDROCHLORIDE
     Indication: PREMEDICATION
     Route: 048
     Dates: start: 20190514, end: 20200513
  6. BAVENCIO [Suspect]
     Active Substance: AVELUMAB
     Dates: start: 20191016, end: 20200513

REACTIONS (1)
  - Aortic dissection [Fatal]

NARRATIVE: CASE EVENT DATE: 20200918
